FAERS Safety Report 23271173 (Version 2)
Quarter: 2024Q1

REPORT INFORMATION
  Report Type: Spontaneous
  Country: US (occurrence: US)
  Receive Date: 20231207
  Receipt Date: 20240307
  Transmission Date: 20240409
  Serious: No
  Sender: FDA-Public Use
  Company Number: US-PHARMAESSENTIA CORPORATION-US-2023-PEC-001595

PATIENT
  Sex: Male

DRUGS (6)
  1. BESREMI [Suspect]
     Active Substance: ROPEGINTERFERON ALFA-2B-NJFT
     Indication: Polycythaemia vera
     Dosage: 100 MCG, Q2W
     Route: 058
     Dates: start: 20230707
  2. BESREMI [Suspect]
     Active Substance: ROPEGINTERFERON ALFA-2B-NJFT
     Dosage: 200 UNK
     Route: 058
  3. BESREMI [Suspect]
     Active Substance: ROPEGINTERFERON ALFA-2B-NJFT
     Dosage: 150 UNK
     Route: 058
     Dates: start: 20230809
  4. BESREMI [Suspect]
     Active Substance: ROPEGINTERFERON ALFA-2B-NJFT
     Dosage: 200 MCG, Q2W
     Route: 058
  5. TYLENOL [Concomitant]
     Active Substance: ACETAMINOPHEN
     Indication: Product used for unknown indication
     Route: 065
  6. ELIQUIS [Concomitant]
     Active Substance: APIXABAN
     Indication: Product used for unknown indication
     Route: 065

REACTIONS (18)
  - Thirst [Unknown]
  - Feeling abnormal [Unknown]
  - Contusion [Unknown]
  - Loss of consciousness [Unknown]
  - Haematocrit increased [Not Recovered/Not Resolved]
  - Neutrophil count abnormal [Unknown]
  - Muscle injury [Unknown]
  - Needle issue [Unknown]
  - Sleep disorder [Unknown]
  - Weight decreased [Unknown]
  - Mania [Unknown]
  - Injection site alopecia [Unknown]
  - Pancytopenia [Unknown]
  - Chills [Unknown]
  - Influenza like illness [Unknown]
  - Hyperhidrosis [Unknown]
  - Platelet count decreased [Unknown]
  - Headache [Recovered/Resolved]
